FAERS Safety Report 9878791 (Version 1)
Quarter: 2014Q1

REPORT INFORMATION
  Report Type: Spontaneous
  Country: US (occurrence: US)
  Receive Date: 20140206
  Receipt Date: 20140206
  Transmission Date: 20141002
  Serious: Yes (Hospitalization)
  Sender: FDA-Public Use
  Company Number: US-GLAXOSMITHKLINE-A1059861A

PATIENT
  Age: 47 Year
  Sex: Male

DRUGS (3)
  1. ADVAIR HFA [Suspect]
     Indication: ASTHMA
     Dosage: 1PUFF TWICE PER DAY
     Route: 055
  2. ADVAIR HFA [Suspect]
     Indication: ASTHMA
     Dosage: 2PUFF PER DAY
     Route: 055
     Dates: start: 2007
  3. ALBUTEROL [Concomitant]
     Route: 055

REACTIONS (4)
  - Pharyngeal operation [Unknown]
  - Pharyngeal mass [Unknown]
  - Cough [Unknown]
  - Drug administration error [Unknown]
